FAERS Safety Report 7999032-6 (Version None)
Quarter: 2011Q4

REPORT INFORMATION
  Report Type: 
  Country: None (occurrence: None)
  Receive Date: 20111218
  Receipt Date: 20111130
  Transmission Date: 20120403
  Serious: Yes (Death, Life-Threatening, Hospitalization, Other)
  Sender: FDA-Public Use
  Company Number: 010975

PATIENT
  Age: 25 Year
  Sex: Male

DRUGS (36)
  1. BUSULFAN [Suspect]
     Indication: STEM CELL TRANSPLANT
     Dosage: 0.8 MG/KG, DAILY DOSE, INTRAVENOUS ; 270 MG, DAILY DOSE, INTRAVENOUS
     Route: 042
     Dates: start: 20100804, end: 20100804
  2. BUSULFAN [Suspect]
     Indication: STEM CELL TRANSPLANT
     Dosage: 0.8 MG/KG, DAILY DOSE, INTRAVENOUS ; 270 MG, DAILY DOSE, INTRAVENOUS
     Route: 042
     Dates: start: 20100809, end: 20100812
  3. DEXAMETHASONE [Concomitant]
  4. NEXIUM [Concomitant]
  5. ATIVAN [Concomitant]
  6. ONDANSETRON [Concomitant]
  7. CAMPHOR (CAMPHOR) [Concomitant]
  8. LOPERAMIDE [Concomitant]
  9. CYCLOPHOSPHAMIDE [Concomitant]
  10. NICORETTE [Concomitant]
  11. ACETAMINOPHEN [Concomitant]
  12. FLUCONAZOLE [Concomitant]
  13. MORPHINE [Concomitant]
  14. VANCOMYCIN [Concomitant]
  15. AMBIEN [Concomitant]
  16. CIPROFLOXACIN [Concomitant]
  17. MESNA [Concomitant]
  18. FLEET MINERAL OIL ENEMA (PARAFFIN, LIQUID) [Concomitant]
  19. ACYCLOVIR [Concomitant]
  20. SODIUM PHOSPHATE (32 P) (SODIUM PHOSPHATE (32 P)) [Concomitant]
  21. MAGNESUIM CITRATE (MAGNESIUM CITRATE) [Concomitant]
  22. SIMETHICONE (SIMETHICONE) [Concomitant]
  23. POTASSIUM CHLORIDE [Concomitant]
  24. HYDROXYZINE [Concomitant]
  25. BEANDRYL/ MAALOX LIDOCAINE [Concomitant]
  26. METOCLOPRAMIDE [Concomitant]
  27. HYDROCORTONE [Concomitant]
  28. ETOPOSIDE [Concomitant]
  29. DIPHENHYDRAMINE HCL [Concomitant]
  30. MAGNESIUM SULFATE [Concomitant]
  31. FENTANYL [Concomitant]
  32. AMITRIPTYLINE HCL [Concomitant]
  33. OXYCODONE HCL [Concomitant]
  34. DOCUSATE (DOCUSATE) [Concomitant]
  35. GI COCKTAIL [Concomitant]
  36. PROMETHAZINE [Concomitant]

REACTIONS (25)
  - KLEBSIELLA BACTERAEMIA [None]
  - HYPOXIA [None]
  - RESPIRATORY DISTRESS [None]
  - ACUTE RESPIRATORY DISTRESS SYNDROME [None]
  - CLOSTRIDIUM COLITIS [None]
  - TACHYCARDIA [None]
  - HEPATIC FUNCTION ABNORMAL [None]
  - SEPTIC SHOCK [None]
  - BACTERIAL INFECTION [None]
  - MULTI-ORGAN FAILURE [None]
  - TACHYPNOEA [None]
  - GASTRIC ULCER [None]
  - PRODUCTIVE COUGH [None]
  - INFLUENZA VIRUS TEST POSITIVE [None]
  - MENTAL STATUS CHANGES [None]
  - ATRIAL FLUTTER [None]
  - SUPRAVENTRICULAR TACHYCARDIA [None]
  - HEPATIC FAILURE [None]
  - ABDOMINAL COMPARTMENT SYNDROME [None]
  - URINE OUTPUT DECREASED [None]
  - HAEMODYNAMIC INSTABILITY [None]
  - LACTIC ACIDOSIS [None]
  - PYREXIA [None]
  - RENAL FAILURE [None]
  - HEPATIC CONGESTION [None]
